FAERS Safety Report 5605692-7 (Version None)
Quarter: 2008Q1

REPORT INFORMATION
  Report Type: 
  Country: None (occurrence: None)
  Receive Date: 20080123
  Receipt Date: 20080123
  Transmission Date: 20080703
  Serious: Yes (Other)
  Sender: FDA-Public Use
  Company Number: None

PATIENT
  Age: 84 Year
  Sex: Male
  Weight: 60.8 kg

DRUGS (1)
  1. ATENOLOL [Suspect]

REACTIONS (1)
  - PAIN IN EXTREMITY [None]
